FAERS Safety Report 9265423 (Version 3)
Quarter: 2013Q2

REPORT INFORMATION
  Report Type: Spontaneous
  Country: GB (occurrence: GB)
  Receive Date: 20130501
  Receipt Date: 20130619
  Transmission Date: 20140414
  Serious: Yes (Death)
  Sender: FDA-Public Use
  Company Number: GB-CELGENEUS-167-21880-13043724

PATIENT
  Sex: Male

DRUGS (47)
  1. REVLIMID [Suspect]
     Indication: MANTLE CELL LYMPHOMA
     Dosage: 5 MILLIGRAM
     Route: 048
     Dates: start: 20130405
  2. REVLIMID [Suspect]
     Dosage: 10 MILLIGRAM
     Route: 048
     Dates: start: 20130409, end: 20130415
  3. PIRITON [Concomitant]
     Indication: PREMEDICATION
     Route: 041
  4. ALLOPURINOL [Concomitant]
     Indication: PREMEDICATION
     Dosage: 300 MILLIGRAM
     Route: 048
  5. ALLOPURINOL [Concomitant]
     Dosage: 1500 MILLIGRAM
     Route: 048
  6. LOPERAMIDE [Concomitant]
     Indication: PREMEDICATION
     Dosage: 2-4 MILLIGRAM
     Route: 048
  7. LOPERAMIDE [Concomitant]
     Indication: DIARRHOEA
     Dosage: 16 MILLIGRAM
     Route: 048
     Dates: start: 20130316
  8. ASPIRINE [Concomitant]
     Indication: PRODUCT USED FOR UNKNOWN INDICATION
     Dosage: 75 MILLIGRAM
     Route: 048
  9. CETIRIZINE [Concomitant]
     Indication: PRODUCT USED FOR UNKNOWN INDICATION
     Dosage: 10 MILLIGRAM
     Route: 048
  10. FUROSEMIDE [Concomitant]
     Indication: PRODUCT USED FOR UNKNOWN INDICATION
     Dosage: 20-40MG
     Route: 048
  11. FUROSEMIDE [Concomitant]
     Dosage: 40 MILLIGRAM
     Route: 041
  12. FUROSEMIDE [Concomitant]
     Dosage: 20 MILLIGRAM
     Route: 041
  13. OMEPRAZOLE [Concomitant]
     Indication: ORAL CANDIDIASIS
     Dosage: 20 MILLIGRAM
     Route: 048
  14. OMEPRAZOLE [Concomitant]
     Dosage: 40 MILLIGRAM
     Route: 048
     Dates: start: 20130312
  15. PERINDOPRIL [Concomitant]
     Indication: PRODUCT USED FOR UNKNOWN INDICATION
     Dosage: 2 MILLIGRAM
     Route: 048
  16. PRAVASTATIN [Concomitant]
     Indication: PRODUCT USED FOR UNKNOWN INDICATION
     Dosage: 40 MILLIGRAM
     Route: 048
  17. PARACETAMOL [Concomitant]
     Indication: PRODUCT USED FOR UNKNOWN INDICATION
     Route: 041
  18. MORPHINE SULPHATE [Concomitant]
     Indication: PRODUCT USED FOR UNKNOWN INDICATION
     Dosage: 5-20MG
     Route: 048
  19. RASBURICASE [Concomitant]
     Indication: PRODUCT USED FOR UNKNOWN INDICATION
     Route: 041
  20. MIDAZOLAM [Concomitant]
     Indication: PRODUCT USED FOR UNKNOWN INDICATION
     Route: 048
  21. NUTILIS COMPLETE FEED [Concomitant]
     Indication: ORAL CANDIDIASIS
     Dosage: 600 MILLILITER
     Route: 050
     Dates: start: 20130312
  22. PHOSPHATE SANDOZ [Concomitant]
     Indication: BLOOD PHOSPHORUS DECREASED
     Dosage: 96.9 MILLIEQUIVALENTS
     Route: 048
     Dates: start: 20130322
  23. MAGNASPARTATE [Concomitant]
     Indication: BLOOD MAGNESIUM DECREASED
     Dosage: 30 MILLIEQUIVALENTS
     Route: 048
  24. ZOPICLONE [Concomitant]
     Indication: INSOMNIA
     Dosage: 37.5 MILLIGRAM
     Route: 048
     Dates: start: 20130401
  25. MEROPENEM [Concomitant]
     Indication: INFECTION
     Route: 041
     Dates: start: 20130302
  26. ENSURE PLUS [Concomitant]
     Indication: DECREASED APPETITE
     Dosage: 375 GRAM
     Route: 048
     Dates: start: 20130405
  27. GAVISCON ADVANCE [Concomitant]
     Indication: DYSPEPSIA
     Route: 048
     Dates: start: 20130404
  28. TRANEXAMIC ACID [Concomitant]
     Indication: THROMBOCYTOPENIA
     Dosage: 3000 MILLIGRAM
     Route: 048
     Dates: start: 20130411
  29. TRANEXAMIC ACID [Concomitant]
     Dosage: 3000 MILLIGRAM
     Route: 041
     Dates: start: 20130411
  30. SALBUTAMOL [Concomitant]
     Indication: WHEEZING
     Dosage: 20 MILLIGRAM
     Route: 055
     Dates: start: 20130413
  31. ZINC SULPHATE [Concomitant]
     Indication: BLOOD ZINC DECREASED
     Dosage: 125 MILLIGRAM
     Route: 048
     Dates: start: 20130318
  32. SANDO K [Concomitant]
     Indication: BLOOD POTASSIUM DECREASED
     Dosage: 48 MILLIEQUIVALENTS
     Route: 048
     Dates: start: 20130315
  33. SANDO K [Concomitant]
     Dosage: 72 MILLIEQUIVALENTS
     Route: 048
     Dates: start: 20130327
  34. GELCLAIR [Concomitant]
     Indication: ORAL CANDIDIASIS
     Dosage: 30 MILLILITER
     Route: 048
     Dates: start: 20130312
  35. CALCIUM CARBONATE [Concomitant]
     Indication: BLOOD CALCIUM DECREASED
     Dosage: 1.25 GRAM
     Route: 048
     Dates: start: 20130315
  36. MULTIVITAMINS [Concomitant]
     Indication: ORAL CANDIDIASIS
     Dosage: .6 MILLILITER
     Route: 048
     Dates: start: 20130312
  37. CASPOFUNGIN [Concomitant]
     Indication: ORAL CANDIDIASIS
     Dosage: 50 MILLIGRAM
     Route: 041
     Dates: start: 20130312
  38. NYSTATIN [Concomitant]
     Indication: ORAL CANDIDIASIS
     Dosage: 100000 IU (INTERNATIONAL UNIT)
     Route: 048
     Dates: start: 20130312
  39. CHLORHEXIDINE GLUCONATE [Concomitant]
     Indication: ORAL CANDIDIASIS
     Dosage: 20 MILLILITER
     Route: 048
     Dates: start: 20130312
  40. TAZOCIN [Concomitant]
     Indication: INFECTION
     Dosage: 13.5 GRAM
     Route: 041
     Dates: start: 20130302
  41. NORMAL SALINE [Concomitant]
     Indication: CYSTITIS
     Route: 041
     Dates: start: 20130117
  42. CLARITHROMYCIN [Concomitant]
     Indication: CYSTITIS
     Dosage: 1000 MILLIGRAM
     Route: 048
     Dates: start: 20130117
  43. CIPROFLOXACIN [Concomitant]
     Indication: CYSTITIS
     Dosage: 1000 MILLIGRAM
     Route: 048
     Dates: start: 20130117
  44. GENTAMICIN [Concomitant]
     Indication: CYSTITIS
     Dosage: 320 MILLIGRAM
     Route: 041
     Dates: start: 20130117
  45. ONDANSETRON [Concomitant]
     Indication: NAUSEA
     Dosage: 16 MILLIGRAM
     Route: 048
     Dates: start: 20130111
  46. ONDANSETRON [Concomitant]
     Indication: PREMEDICATION
  47. BENZYDAMINE [Concomitant]
     Indication: ORAL CANDIDIASIS
     Dosage: 60 MILLILITER
     Route: 048
     Dates: start: 20130312

REACTIONS (1)
  - Mantle cell lymphoma [Fatal]
